FAERS Safety Report 11524482 (Version 1)
Quarter: 2015Q3

REPORT INFORMATION
  Report Type: Spontaneous
  Country: US (occurrence: US)
  Receive Date: 20150918
  Receipt Date: 20150918
  Transmission Date: 20151125
  Serious: No
  Sender: FDA-Public Use
  Company Number: US-ROCHE-742226

PATIENT
  Age: 51 Year
  Sex: Male
  Weight: 87.3 kg

DRUGS (6)
  1. PEGASYS [Suspect]
     Active Substance: PEGINTERFERON ALFA-2A
     Indication: PRODUCT USED FOR UNKNOWN INDICATION
     Dosage: FORM: SYRINGE, STRENGTH AND DOSE: 180. MISSED TWO DOSES.
     Route: 058
  2. RIBAVIRIN. [Suspect]
     Active Substance: RIBAVIRIN
     Indication: PRODUCT USED FOR UNKNOWN INDICATION
     Route: 048
  3. KLONOPIN [Concomitant]
     Active Substance: CLONAZEPAM
     Route: 065
  4. MORPHINE [Concomitant]
     Active Substance: MORPHINE
     Route: 065
  5. VICODIN [Concomitant]
     Active Substance: ACETAMINOPHEN\HYDROCODONE BITARTRATE
     Dosage: DRUG: VICODEN
     Route: 065
  6. NEURONTIN [Concomitant]
     Active Substance: GABAPENTIN
     Dosage: DRUG: NEUROTIN
     Route: 065

REACTIONS (3)
  - Procedural complication [Unknown]
  - Drug dose omission [Unknown]
  - No adverse event [Unknown]
